FAERS Safety Report 6149616-5 (Version None)
Quarter: 2009Q2

REPORT INFORMATION
  Report Type: 
  Country: None (occurrence: None)
  Receive Date: 20090409
  Receipt Date: 20090330
  Transmission Date: 20091009
  Serious: Yes (Hospitalization)
  Sender: FDA-Public Use
  Company Number: FR-NOVOPROD-285766

PATIENT
  Age: 57 Year
  Sex: Male

DRUGS (3)
  1. REPAGLINIDE [Suspect]
     Indication: TYPE 2 DIABETES MELLITUS
     Dosage: UNK MG, QD
     Route: 048
  2. REPAGLINIDE [Suspect]
     Dosage: 9 MG, UNK
     Dates: start: 20090325
  3. ISOPTIN [Suspect]
     Indication: HYPERTENSION
     Dosage: 240 MG, QD
     Route: 048

REACTIONS (5)
  - ATRIOVENTRICULAR BLOCK [None]
  - HYPOGLYCAEMIA [None]
  - HYPOTENSION [None]
  - ISCHAEMIC HEPATITIS [None]
  - RENAL FAILURE [None]
